FAERS Safety Report 11756715 (Version 1)
Quarter: 2015Q4

REPORT INFORMATION
  Report Type: Spontaneous
  Country: US (occurrence: US)
  Receive Date: 20151120
  Receipt Date: 20151120
  Transmission Date: 20160304
  Serious: No
  Sender: FDA-Public Use
  Company Number: US-ASTRAZENECA-2015SF09404

PATIENT
  Age: 4 Month
  Sex: Male

DRUGS (1)
  1. SYNAGIS [Suspect]
     Active Substance: PALIVIZUMAB
     Dosage: MONTHLY
     Route: 030
     Dates: start: 20151106

REACTIONS (4)
  - Pallor [Unknown]
  - Injection site reaction [Unknown]
  - Rash [Unknown]
  - Rash maculo-papular [Unknown]

NARRATIVE: CASE EVENT DATE: 20151106
